FAERS Safety Report 5309695-1 (Version None)
Quarter: 2007Q2

REPORT INFORMATION
  Report Type: 
  Country: None (occurrence: None)
  Receive Date: 20070427
  Receipt Date: 20070417
  Transmission Date: 20071010
  Serious: Yes (Other)
  Sender: FDA-Public Use
  Company Number: JP-ROCHE-487794

PATIENT
  Age: 6 Year
  Sex: Male
  Weight: 23 kg

DRUGS (4)
  1. TAMIFLU [Suspect]
     Dosage: FORM REPORTED AS DRY SYRUP.
     Route: 048
     Dates: start: 20060310, end: 20060314
  2. POLARAMINE [Concomitant]
     Route: 048
     Dates: start: 20070310, end: 20070314
  3. MUCODYNE [Concomitant]
     Route: 048
     Dates: start: 20070310, end: 20070314
  4. ENTERONON-R [Concomitant]
     Route: 048
     Dates: start: 20070310, end: 20070314

REACTIONS (1)
  - DELIRIUM FEBRILE [None]
